FAERS Safety Report 9331239 (Version 2)
Quarter: 2013Q3

REPORT INFORMATION
  Report Type: Spontaneous
  Country: JP (occurrence: JP)
  Receive Date: 20130605
  Receipt Date: 20130801
  Transmission Date: 20140515
  Serious: Yes (Other)
  Sender: FDA-Public Use
  Company Number: JP-JNJFOC-20130520833

PATIENT
  Age: 75 Year
  Sex: Female

DRUGS (6)
  1. XARELTO [Suspect]
     Indication: CEREBROVASCULAR ACCIDENT PROPHYLAXIS
     Route: 048
     Dates: start: 20121025, end: 20130425
  2. XARELTO [Suspect]
     Indication: ATRIAL FIBRILLATION
     Route: 048
     Dates: start: 20121025, end: 20130425
  3. DONEPEZIL HYDROCHLORIDE [Concomitant]
     Route: 048
     Dates: end: 20130517
  4. EXFORGE [Concomitant]
     Route: 048
     Dates: start: 20111006, end: 20130517
  5. FAMOTIDINE [Concomitant]
     Route: 048
     Dates: start: 20120412, end: 20130517
  6. DIGOXIN [Concomitant]
     Route: 048
     Dates: start: 20120412, end: 20130517

REACTIONS (2)
  - Gastritis haemorrhagic [Recovered/Resolved]
  - Haematemesis [Recovered/Resolved]
